FAERS Safety Report 11425470 (Version 1)
Quarter: 2015Q3

REPORT INFORMATION
  Report Type: Spontaneous
  Country: US (occurrence: US)
  Receive Date: 20150821
  Receipt Date: 20150821
  Transmission Date: 20151125
  Serious: No
  Sender: FDA-Public Use
  Company Number: US-ELI_LILLY_AND_COMPANY-US201102002493

PATIENT
  Age: 68 Year
  Sex: Female

DRUGS (3)
  1. HUMULIN N [Suspect]
     Active Substance: INSULIN HUMAN
  2. LEVEMIR [Concomitant]
     Active Substance: INSULIN DETEMIR
  3. HUMULIN N [Suspect]
     Active Substance: INSULIN HUMAN
     Indication: TYPE 2 DIABETES MELLITUS
     Dosage: 30 U, 2/D
     Dates: start: 20110205

REACTIONS (3)
  - Drug dose omission [Unknown]
  - Drug dispensing error [Unknown]
  - Disability [Unknown]

NARRATIVE: CASE EVENT DATE: 201102
